FAERS Safety Report 12465297 (Version 1)
Quarter: 2016Q2

REPORT INFORMATION
  Report Type: Spontaneous
  Country: GB (occurrence: GB)
  Receive Date: 20160614
  Receipt Date: 20160614
  Transmission Date: 20160815
  Serious: Yes (Death, Other)
  Sender: FDA-Public Use
  Company Number: PHFR2016GB004766

PATIENT
  Age: 61 Year
  Sex: Male

DRUGS (4)
  1. EVEROLIMUS [Suspect]
     Active Substance: EVEROLIMUS
     Indication: METASTASES TO LYMPH NODES
  2. EVEROLIMUS [Suspect]
     Active Substance: EVEROLIMUS
     Indication: METASTASES TO LIVER
     Dosage: 5 MG, QD
     Route: 065
     Dates: start: 201003
  3. EVEROLIMUS [Suspect]
     Active Substance: EVEROLIMUS
     Indication: METASTASES TO LUNG
     Dosage: 10 MG AND 5 MG ALTERNATE DAYS
     Route: 065
     Dates: start: 201108
  4. EVEROLIMUS [Suspect]
     Active Substance: EVEROLIMUS
     Indication: RENAL CELL CARCINOMA
     Dosage: 10 MG, QD
     Route: 065
     Dates: start: 200909

REACTIONS (12)
  - Death [Fatal]
  - Diarrhoea [Unknown]
  - Empyema [Unknown]
  - Malignant neoplasm progression [Unknown]
  - Anaemia [Unknown]
  - Hyperlipidaemia [Unknown]
  - Pneumonitis [Unknown]
  - Diabetes mellitus [Unknown]
  - Interstitial lung disease [Unknown]
  - Decreased appetite [Unknown]
  - Lethargy [Unknown]
  - Malaise [Unknown]

NARRATIVE: CASE EVENT DATE: 200912
